FAERS Safety Report 9854800 (Version 14)
Quarter: 2015Q1

REPORT INFORMATION
  Report Type: Report from Study
  Country: BE (occurrence: BE)
  Receive Date: 20140130
  Receipt Date: 20150225
  Transmission Date: 20150721
  Serious: Yes (Other)
  Sender: FDA-Public Use
  Company Number: BE-ROCHE-1335378

PATIENT
  Age: 45 Year
  Sex: Female
  Weight: 87.4 kg

DRUGS (8)
  1. VOLTAREN [Concomitant]
     Active Substance: DICLOFENAC SODIUM
     Route: 065
     Dates: start: 2013
  2. METFORMIN [Concomitant]
     Active Substance: METFORMIN HYDROCHLORIDE
     Route: 065
     Dates: start: 2010
  3. BRUFEN FORTE [Concomitant]
     Route: 065
     Dates: start: 20120403
  4. TRANXENE T-TAB [Concomitant]
     Active Substance: CLORAZEPATE DIPOTASSIUM
     Route: 065
     Dates: start: 20121005
  5. DIXARIT [Concomitant]
     Active Substance: CLONIDINE HYDROCHLORIDE
     Dosage: DOSE : 25 UG.
     Route: 065
     Dates: start: 201305
  6. VEMURAFENIB [Suspect]
     Active Substance: VEMURAFENIB
     Indication: METASTATIC MALIGNANT MELANOMA
     Dosage: FORM: 240, DATE OF LAST DOSE PRIOR TO SAE: 16/DEC/2013.
     Route: 048
     Dates: start: 20120323, end: 20140116
  7. LORAZEPAM. [Concomitant]
     Active Substance: LORAZEPAM
     Route: 065
     Dates: start: 200909
  8. OMEPRAZOLE. [Concomitant]
     Active Substance: OMEPRAZOLE
     Route: 065
     Dates: start: 2007

REACTIONS (1)
  - Synovial sarcoma [Not Recovered/Not Resolved]

NARRATIVE: CASE EVENT DATE: 20131217
